FAERS Safety Report 5405119-4 (Version None)
Quarter: 2007Q3

REPORT INFORMATION
  Report Type: 
  Country: None (occurrence: None)
  Receive Date: 20070803
  Receipt Date: 20070723
  Transmission Date: 20080115
  Serious: Yes (Hospitalization)
  Sender: FDA-Public Use
  Company Number: US-SHR-US-2007-017095

PATIENT
  Age: 29 Year
  Sex: Female
  Weight: 62.132 kg

DRUGS (7)
  1. BETASERON [Suspect]
     Indication: RELAPSING-REMITTING MULTIPLE SCLEROSIS
     Dosage: 8 MIU, EVERY 2D
     Route: 058
     Dates: start: 20040913
  2. ANTIBIOTICS [Suspect]
     Indication: INJECTION SITE CELLULITIS
     Dates: start: 20070415
  3. TRINESSA [Concomitant]
     Dosage: 1 UNK, 1X/DAY
     Route: 048
     Dates: start: 19960901
  4. VITAMIN CAP [Concomitant]
  5. GLUCOSAMINE W/CHONDROITIN [Concomitant]
  6. FISH OIL [Concomitant]
  7. CALCIUM CHLORIDE [Concomitant]

REACTIONS (7)
  - ABASIA [None]
  - ADVERSE DRUG REACTION [None]
  - INJECTION SITE ABSCESS [None]
  - INJECTION SITE CELLULITIS [None]
  - INJECTION SITE INDURATION [None]
  - INJECTION SITE PAIN [None]
  - MYOSITIS [None]
